FAERS Safety Report 12232029 (Version 2)
Quarter: 2016Q3

REPORT INFORMATION
  Report Type: Spontaneous
  Country: US (occurrence: US)
  Receive Date: 20160401
  Receipt Date: 20160829
  Transmission Date: 20161109
  Serious: Yes (Hospitalization)
  Sender: FDA-Public Use
  Company Number: US-BAYER-2016-062342

PATIENT
  Age: 24 Year
  Sex: Female

DRUGS (7)
  1. VALIUM [Concomitant]
     Active Substance: DIAZEPAM
  2. MOTRIN [Concomitant]
     Active Substance: IBUPROFEN
  3. PRENATAL VITAMINS [Concomitant]
     Active Substance: VITAMINS
  4. MIRENA [Suspect]
     Active Substance: LEVONORGESTREL
     Indication: CONTRACEPTION
     Dosage: 20 MCG/24HR, CONT
     Route: 015
     Dates: start: 20080424, end: 20120925
  5. ADVIL [Concomitant]
     Active Substance: IBUPROFEN
  6. CYTOTEC [Concomitant]
     Active Substance: MISOPROSTOL
  7. PERCOCET [Concomitant]
     Active Substance: ACETAMINOPHEN\OXYCODONE HYDROCHLORIDE

REACTIONS (3)
  - Uterine perforation [None]
  - Pain [None]
  - Device issue [None]

NARRATIVE: CASE EVENT DATE: 201209
